FAERS Safety Report 9036133 (Version 1)
Quarter: 2013Q1

REPORT INFORMATION
  Report Type: Report from Study
  Country: US (occurrence: US)
  Receive Date: 20130129
  Receipt Date: 20130129
  Transmission Date: 20140127
  Serious: No
  Sender: FDA-Public Use
  Company Number: US-ABBOTT-12P-163-0923601-00

PATIENT
  Age: 39 Year
  Sex: Female

DRUGS (5)
  1. HUMIRA 40 MG/0.8 ML PEN [Suspect]
     Indication: RHEUMATOID ARTHRITIS
     Dates: start: 2003, end: 200710
  2. HUMIRA 40 MG/0.8 ML PEN [Suspect]
     Dates: start: 2009
  3. PLAQUENIL [Concomitant]
     Indication: RHEUMATOID ARTHRITIS
  4. ATENOLOL [Concomitant]
     Indication: HYPERTENSION
  5. SYNTHROID [Concomitant]
     Indication: HYPOTHYROIDISM

REACTIONS (3)
  - Injection site pain [Recovered/Resolved]
  - Injection site pain [Unknown]
  - Weight decreased [Unknown]
